FAERS Safety Report 7948885-6 (Version None)
Quarter: 2011Q4

REPORT INFORMATION
  Report Type: 
  Country: None (occurrence: None)
  Receive Date: 20111130
  Receipt Date: 20111123
  Transmission Date: 20120403
  Serious: Yes (Hospitalization)
  Sender: FDA-Public Use
  Company Number: PHEH2011US010230

PATIENT
  Sex: Male

DRUGS (1)
  1. EXJADE [Suspect]
     Indication: HAEMATOPOIETIC NEOPLASM
     Dosage: 1250 MG, QD
     Route: 048

REACTIONS (1)
  - PNEUMONIA [None]
